FAERS Safety Report 16893462 (Version 1)
Quarter: 2019Q4

REPORT INFORMATION
  Report Type: Report from Study
  Country: IN (occurrence: IN)
  Receive Date: 20191008
  Receipt Date: 20191008
  Transmission Date: 20200122
  Serious: Yes (Hospitalization)
  Sender: FDA-Public Use
  Company Number: IN-KARYOPHARM-2018KPT000290

PATIENT
  Age: 65 Year
  Sex: Male
  Weight: 49 kg

DRUGS (7)
  1. SELINEXOR [Suspect]
     Active Substance: SELINEXOR
     Dosage: 40 MG, 2X/WEEK
     Route: 048
     Dates: start: 20180601
  2. PANTOPRAZOLE [Concomitant]
     Active Substance: PANTOPRAZOLE
     Indication: DYSPEPSIA
     Dosage: 20 MG, BID
     Route: 048
     Dates: start: 201304
  3. SELINEXOR [Suspect]
     Active Substance: SELINEXOR
     Indication: DIFFUSE LARGE B-CELL LYMPHOMA
     Dosage: 60 MG, 2X/WEEK
     Route: 048
     Dates: start: 20180427, end: 20180527
  4. INSULIN [Concomitant]
     Active Substance: INSULIN NOS
     Dosage: 40 IU/ML, UNK
     Route: 042
     Dates: start: 201705
  5. INSULIN [Concomitant]
     Active Substance: INSULIN NOS
     Indication: HYPERGLYCAEMIA
     Dosage: UNK, TWICE DAILY
     Route: 058
     Dates: start: 201604
  6. ONDANSETRON [Concomitant]
     Active Substance: ONDANSETRON
     Indication: NAUSEA
     Dosage: 8 MG, BID
     Route: 048
     Dates: start: 20180427, end: 20180527
  7. AMLOVAS [Concomitant]
     Indication: HYPERTENSION
     Dosage: 2.5 MG, QD
     Route: 048
     Dates: start: 201704

REACTIONS (4)
  - Vomiting [Recovered/Resolved]
  - Fatigue [Recovering/Resolving]
  - Hyponatraemia [Recovering/Resolving]
  - Nausea [Recovered/Resolved]

NARRATIVE: CASE EVENT DATE: 20180527
